FAERS Safety Report 8574361-6 (Version None)
Quarter: 2012Q3

REPORT INFORMATION
  Report Type: 
  Country: None (occurrence: None)
  Receive Date: 20120806
  Receipt Date: 20120730
  Transmission Date: 20120928
  Serious: Yes (Hospitalization)
  Sender: FDA-Public Use
  Company Number: JP-ABBOTT-12P-087-0962124-00

PATIENT
  Age: 53 Year
  Sex: Male

DRUGS (5)
  1. RALTEGRAVIR [Concomitant]
     Indication: HIV INFECTION
     Dosage: DAILY DOSE 800 MG
     Route: 048
     Dates: start: 20120110
  2. FOSAMPRENAVIR CALCIUM [Concomitant]
     Indication: HIV INFECTION
     Route: 048
     Dates: end: 20111220
  3. KALETRA [Suspect]
     Indication: HIV INFECTION
     Route: 048
     Dates: start: 20111221
  4. RITONAVIR [Concomitant]
     Indication: HIV INFECTION
     Dosage: DAILY DOSE 200 MG
     Route: 048
     Dates: end: 20111220
  5. ABACAVIR SULFATE/LAMIVUDINE [Concomitant]
     Indication: HIV INFECTION
     Dosage: DAILY DOSE 1 DOSAGE FORMS
     Route: 048
     Dates: end: 20120109

REACTIONS (2)
  - PYREXIA [None]
  - MYCOBACTERIUM AVIUM COMPLEX INFECTION [None]
